FAERS Safety Report 12174040 (Version 2)
Quarter: 2016Q2

REPORT INFORMATION
  Report Type: Spontaneous
  Country: US (occurrence: US)
  Receive Date: 20160314
  Receipt Date: 20160511
  Transmission Date: 20160815
  Serious: Yes (Other)
  Sender: FDA-Public Use
  Company Number: US-BEH-2016059829

PATIENT
  Age: 76 Year
  Sex: Male
  Weight: 68 kg

DRUGS (15)
  1. CLONAZEPAM. [Concomitant]
     Active Substance: CLONAZEPAM
  2. HIZENTRA [Suspect]
     Active Substance: HUMAN IMMUNOGLOBULIN G
     Indication: IMMUNODEFICIENCY COMMON VARIABLE
     Dosage: ??-JAN-2007
     Route: 058
  3. LIDOCAINE/PRILOCAINE [Concomitant]
  4. LOVASTATIN. [Concomitant]
     Active Substance: LOVASTATIN
  5. HYDROXYUREA. [Concomitant]
     Active Substance: HYDROXYUREA
  6. HIZENTRA [Suspect]
     Active Substance: HUMAN IMMUNOGLOBULIN G
     Dosage: ??-JAN-2007
     Route: 058
  7. FLAX SEED [Concomitant]
     Active Substance: FLAX SEED
  8. DIPHENHYDRAMINE. [Concomitant]
     Active Substance: DIPHENHYDRAMINE
  9. ALLOPURINOL. [Concomitant]
     Active Substance: ALLOPURINOL
  10. COMPLETE MULTIVITAMIN [Concomitant]
     Active Substance: VITAMINS
  11. AMIODARONE [Concomitant]
     Active Substance: AMIODARONE
  12. LEVOTHYROXINE. [Concomitant]
     Active Substance: LEVOTHYROXINE
  13. FLONASE [Concomitant]
     Active Substance: FLUTICASONE PROPIONATE
  14. EPIPEN [Concomitant]
     Active Substance: EPINEPHRINE
  15. PROPANOLOL [Concomitant]
     Active Substance: PROPRANOLOL HYDROCHLORIDE

REACTIONS (2)
  - Toothache [Unknown]
  - Tooth abscess [Unknown]

NARRATIVE: CASE EVENT DATE: 20160204
